FAERS Safety Report 18860669 (Version 1)
Quarter: 2021Q1

REPORT INFORMATION
  Report Type: Spontaneous
  Country: US (occurrence: US)
  Receive Date: 20210208
  Receipt Date: 20210208
  Transmission Date: 20210420
  Serious: No
  Sender: FDA-Public Use
  Company Number: US-PFIZER INC-2021092663

PATIENT
  Age: 66 Year
  Sex: Male
  Weight: 77.1 kg

DRUGS (14)
  1. LISINOPRIL/HYDROCHLOROTHIAZID [Concomitant]
     Active Substance: HYDROCHLOROTHIAZIDE\LISINOPRIL
     Dosage: UNK
  2. NARCAN [Concomitant]
     Active Substance: NALOXONE HYDROCHLORIDE
     Dosage: UNK
  3. INLYTA [Suspect]
     Active Substance: AXITINIB
     Indication: RENAL CANCER
     Dosage: 5 MG, 2X/DAY
     Route: 048
     Dates: start: 20210107
  4. FOLIC ACID. [Concomitant]
     Active Substance: FOLIC ACID
     Dosage: UNK
  5. OXYCONTIN [Concomitant]
     Active Substance: OXYCODONE HYDROCHLORIDE
     Dosage: UNK
  6. ONDANSETRON [Concomitant]
     Active Substance: ONDANSETRON
     Dosage: UNK
  7. OXYCODONE AND ACETAMINOPHEN [Concomitant]
     Active Substance: ACETAMINOPHEN\OXYCODONE HYDROCHLORIDE
     Dosage: UNK
  8. CABOMETYX [Concomitant]
     Active Substance: CABOZANTINIB S-MALATE
     Dosage: UNK
  9. DRONABINOL. [Concomitant]
     Active Substance: DRONABINOL
     Dosage: UNK
  10. DICLOFENAC [Concomitant]
     Active Substance: DICLOFENAC
     Dosage: UNK
  11. VITAMIN B12 [Concomitant]
     Active Substance: CYANOCOBALAMIN
     Dosage: UNK
  12. OXYCODONE [Suspect]
     Active Substance: OXYCODONE
     Dosage: TWICE A DAY
  13. OXYCODONE [Suspect]
     Active Substance: OXYCODONE
     Dosage: EVERY 4 HOURS
  14. CLOBETASOL [Concomitant]
     Active Substance: CLOBETASOL
     Dosage: UNK

REACTIONS (2)
  - Somnolence [Unknown]
  - Fatigue [Unknown]
